FAERS Safety Report 9702833 (Version 1)
Quarter: 2013Q4

REPORT INFORMATION
  Report Type: Spontaneous
  Country: JP (occurrence: JP)
  Receive Date: 20131121
  Receipt Date: 20131121
  Transmission Date: 20140711
  Serious: Yes (Other)
  Sender: FDA-Public Use
  Company Number: JP-GLAXOSMITHKLINE-B0946917A

PATIENT
  Age: 18 Year
  Sex: Male

DRUGS (4)
  1. ALKERAN [Suspect]
     Indication: STEM CELL TRANSPLANT
     Route: 042
  2. FLUDARABINE [Concomitant]
     Indication: STEM CELL TRANSPLANT
  3. CICLOSPORIN [Concomitant]
     Indication: PROPHYLAXIS AGAINST GRAFT VERSUS HOST DISEASE
  4. METHOTREXATE [Concomitant]
     Indication: PROPHYLAXIS AGAINST GRAFT VERSUS HOST DISEASE

REACTIONS (10)
  - Renal failure acute [Recovered/Resolved]
  - Renal impairment [Unknown]
  - Hyperbilirubinaemia [Recovered/Resolved]
  - Anuria [Recovered/Resolved]
  - Glomerulosclerosis [Unknown]
  - Oliguria [Recovered/Resolved]
  - Oedema [Unknown]
  - Refractoriness to platelet transfusion [Unknown]
  - Fibrin D dimer increased [Recovered/Resolved]
  - Biopsy kidney abnormal [Unknown]
